FAERS Safety Report 6156266-3 (Version None)
Quarter: 2009Q2

REPORT INFORMATION
  Report Type: 
  Country: None (occurrence: None)
  Receive Date: 20090413
  Receipt Date: 20090413
  Transmission Date: 20091009
  Serious: No
  Sender: FDA-Public Use
  Company Number: None

PATIENT
  Age: 22 Year
  Sex: Female
  Weight: 61.6892 kg

DRUGS (11)
  1. BACTRIM [Suspect]
     Indication: PROPHYLAXIS
     Dosage: 1 TABLET TWICE DAILY PO
     Route: 048
     Dates: start: 20090329, end: 20090410
  2. BACTRIM [Suspect]
     Indication: SURGERY
     Dosage: 1 TABLET TWICE DAILY PO
     Route: 048
     Dates: start: 20090329, end: 20090410
  3. BACTROBAN 2% [Concomitant]
  4. EXCEDRIN (MIGRAINE) [Concomitant]
  5. ACETAMINOPHEN [Concomitant]
  6. ASPIRIN [Concomitant]
  7. CAFFEINE [Concomitant]
  8. MOTRIN IB [Concomitant]
  9. TYLENOL [Concomitant]
  10. WALGREENS ANTACID TABLETS [Concomitant]
  11. WAL-DRYL ALLERGY ANTIHISTAMINE (DIPHENHYDRAMINE HCL) [Concomitant]

REACTIONS (20)
  - ARTHRALGIA [None]
  - BLISTER [None]
  - DIARRHOEA [None]
  - DRUG DOSE OMISSION [None]
  - EAR PAIN [None]
  - GASTROINTESTINAL PAIN [None]
  - HYPERSENSITIVITY [None]
  - INFLUENZA [None]
  - INSOMNIA [None]
  - IRRITABILITY [None]
  - LYMPHADENOPATHY [None]
  - MIGRAINE [None]
  - MYALGIA [None]
  - OROPHARYNGEAL PAIN [None]
  - PAIN [None]
  - PARAESTHESIA [None]
  - RESTLESSNESS [None]
  - SEASONAL ALLERGY [None]
  - SYNCOPE [None]
  - VIRAL INFECTION [None]
